FAERS Safety Report 17073995 (Version 1)
Quarter: 2019Q4

REPORT INFORMATION
  Report Type: Other
  Country: DE (occurrence: DE)
  Receive Date: 20191126
  Receipt Date: 20191126
  Transmission Date: 20200122
  Serious: Yes (Hospitalization, Other)
  Sender: FDA-Public Use
  Company Number: DE-CELLTRION INC.-2019DE026636

PATIENT

DRUGS (93)
  1. RITUXIMAB (UNKNOWN) [Suspect]
     Active Substance: RITUXIMAB
     Dosage: 700 MG, UNK (INFUSION RATE 2.08 ML/MIN FROM 07:30 TO 11:30)
     Route: 042
     Dates: start: 20171109, end: 20171109
  2. RITUXIMAB (UNKNOWN) [Suspect]
     Active Substance: RITUXIMAB
     Dosage: 700 MG, UNK (INFUSION RATE 2.08 ML/MIN FROM 07:30 TO 11:30)
     Route: 041
     Dates: start: 20180129, end: 20180129
  3. CYCLOPHOSPHAMIDE. [Suspect]
     Active Substance: CYCLOPHOSPHAMIDE
     Dosage: 400 MG, UNK (INFUSION RATE 2.08 ML/MIN FROM 07:35 TO 11:35)
     Route: 041
     Dates: start: 20180109, end: 20180109
  4. DOXORUBICIN [Suspect]
     Active Substance: DOXORUBICIN
     Dosage: 93 MG, UNK (INFUSION RATE 8.33 ML/MIN FROM 11:35 TO 12:05)
     Route: 041
     Dates: start: 20171128, end: 20171128
  5. PREDNISONE. [Suspect]
     Active Substance: PREDNISONE
     Dosage: 400 MG, UNK
     Route: 048
     Dates: start: 20171128, end: 20171201
  6. PREDNISONE. [Suspect]
     Active Substance: PREDNISONE
     Dosage: 400 MG, UNK
     Route: 048
     Dates: start: 20180130, end: 20180202
  7. VINCRISTINE [Suspect]
     Active Substance: VINCRISTINE
     Dosage: 2 MG, UNK (INFUSION RATE 2 ML/MIN FROM 07:30 TO 07:35)
     Route: 041
     Dates: start: 20180109, end: 20180109
  8. AMPHO-MORONAL [Concomitant]
     Active Substance: AMPHOTERICIN B
     Dosage: UNK
     Route: 048
     Dates: start: 20180129, end: 20180204
  9. RANITIDIN [Concomitant]
     Active Substance: RANITIDINE HYDROCHLORIDE
     Dosage: UNK
     Route: 042
     Dates: start: 20171218, end: 20171218
  10. KEVATRIL [Concomitant]
     Active Substance: GRANISETRON HYDROCHLORIDE
     Dosage: 1 MG, UNK
     Route: 042
     Dates: start: 20171114, end: 20171114
  11. TAVEGIL [CLEMASTINE] [Concomitant]
     Active Substance: CLEMASTINE
     Dosage: UNK
     Route: 042
     Dates: start: 20171218, end: 20171218
  12. MESNA. [Concomitant]
     Active Substance: MESNA
     Indication: PROPHYLAXIS
     Dosage: 2800 MG, UNK
     Route: 042
     Dates: start: 20171113, end: 20171113
  13. MESNA. [Concomitant]
     Active Substance: MESNA
     Dosage: 2800 MG, UNK
     Route: 042
     Dates: start: 20171219, end: 20171219
  14. NEULASTA [Concomitant]
     Active Substance: PEGFILGRASTIM
     Indication: PROPHYLAXIS
     Dosage: 6 MG, UNK
     Route: 058
     Dates: start: 20171115, end: 20171115
  15. NEULASTA [Concomitant]
     Active Substance: PEGFILGRASTIM
     Dosage: 6 MG, UNK
     Route: 058
     Dates: start: 20180201, end: 20180201
  16. RITUXIMAB (UNKNOWN) [Suspect]
     Active Substance: RITUXIMAB
     Dosage: 700 MG, UNK (INFUSION DATE 2.08 ML/MIN FROM 07:30 TO 11:30)
     Route: 042
     Dates: start: 20180108, end: 20180108
  17. PREDNISONE. [Suspect]
     Active Substance: PREDNISONE
     Dosage: 400 MG, UNK
     Route: 048
     Dates: start: 20180109, end: 20180112
  18. PREDNISONE. [Suspect]
     Active Substance: PREDNISONE
     Dosage: 400 MG, UNK
     Route: 048
     Dates: start: 20180220, end: 20180223
  19. VINCRISTINE [Suspect]
     Active Substance: VINCRISTINE
     Dosage: 2 MG, UNK (INFUSION RATE 2 ML/MIN FROM 07:30 TO 07:35)
     Route: 041
     Dates: start: 20171128, end: 20171128
  20. PREDNISOLUT [PREDNISOLONE SODIUM SUCCINATE] [Concomitant]
     Dosage: 100 MG, UNK
     Route: 048
     Dates: start: 20171103, end: 20171106
  21. PREDNISOLUT [PREDNISOLONE SODIUM SUCCINATE] [Concomitant]
     Dosage: 100 MG, UNK
     Route: 042
     Dates: start: 20171218, end: 20171218
  22. AMPHO-MORONAL [Concomitant]
     Active Substance: AMPHOTERICIN B
     Indication: PROPHYLAXIS
     Dosage: UNK
     Route: 048
     Dates: start: 20171112, end: 20171118
  23. KEVATRIL [Concomitant]
     Active Substance: GRANISETRON HYDROCHLORIDE
     Dosage: 2 MG, UNK
     Route: 042
     Dates: start: 20171220, end: 20171220
  24. TAVEGIL [CLEMASTINE] [Concomitant]
     Active Substance: CLEMASTINE
     Dosage: UNK
     Route: 042
     Dates: start: 20180108, end: 20180108
  25. MESNA. [Concomitant]
     Active Substance: MESNA
     Dosage: 2800 MG, UNK
     Route: 042
     Dates: start: 20180220, end: 20180220
  26. DOXORUBICIN [Suspect]
     Active Substance: DOXORUBICIN
     Indication: DIFFUSE LARGE B-CELL LYMPHOMA
     Dosage: 93 MG, UNK (INFUSION RATE 8.3 ML/MIN FROM 12:00 TO 12:30)
     Route: 041
     Dates: start: 20171113, end: 20171113
  27. DOXORUBICIN [Suspect]
     Active Substance: DOXORUBICIN
     Dosage: 3 MG, UNK (INFUSION RATE 8.33 ML/MIN FROM 11:35 TO 12:05)
     Route: 041
     Dates: start: 20180109, end: 20180109
  28. DOXORUBICIN [Suspect]
     Active Substance: DOXORUBICIN
     Dosage: 93 MG, UNK (INFUSION RATE 8.33 ML/MIN FROM 11:35 TO 12:05)
     Route: 041
     Dates: start: 20180220, end: 20180220
  29. PREDNISONE. [Suspect]
     Active Substance: PREDNISONE
     Indication: DIFFUSE LARGE B-CELL LYMPHOMA
     Dosage: 400 MG, UNK
     Route: 048
     Dates: start: 20171113, end: 20171116
  30. PREDNISONE. [Suspect]
     Active Substance: PREDNISONE
     Dosage: 400 MG, UNK
     Route: 048
     Dates: start: 20171219, end: 20171222
  31. VINCRISTINE [Suspect]
     Active Substance: VINCRISTINE
     Dosage: 2 MG, UNK (INFUSION RATE 2 ML/MIN FROM 07:30 TO 07:35)
     Route: 041
     Dates: start: 20180220, end: 20180220
  32. AMPHO-MORONAL [Concomitant]
     Active Substance: AMPHOTERICIN B
     Dosage: UNK UNK, BID
     Route: 048
     Dates: start: 20171218, end: 20171224
  33. PARACETAMOL [Concomitant]
     Active Substance: ACETAMINOPHEN
     Dosage: 1 G, UNK
     Route: 048
     Dates: start: 20171218, end: 20171218
  34. PARACETAMOL [Concomitant]
     Active Substance: ACETAMINOPHEN
     Dosage: 1 G, UNK
     Route: 048
     Dates: start: 20180129, end: 20180129
  35. UROMITEXAN [Concomitant]
     Active Substance: MESNA
     Dosage: 400 MG, UNK
     Route: 048
     Dates: start: 20180130, end: 20180130
  36. UROMITEXAN [Concomitant]
     Active Substance: MESNA
     Dosage: 400 MG, UNK
     Route: 048
     Dates: start: 20180220, end: 20180220
  37. KEVATRIL [Concomitant]
     Active Substance: GRANISETRON HYDROCHLORIDE
     Dosage: 2 MG, UNK
     Route: 042
     Dates: start: 20180221, end: 20180221
  38. RITUXIMAB (UNKNOWN) [Suspect]
     Active Substance: RITUXIMAB
     Dosage: 700 MG, UNK (INFUSION RATE 2.08 ML/MIN FROM 07:30 TO 11:30)
     Route: 042
     Dates: start: 20171127, end: 20171127
  39. VINCRISTINE [Suspect]
     Active Substance: VINCRISTINE
     Indication: DIFFUSE LARGE B-CELL LYMPHOMA
     Dosage: 2 MG, UNK
     Route: 041
     Dates: start: 20171102, end: 20171102
  40. AMPHO-MORONAL [Concomitant]
     Active Substance: AMPHOTERICIN B
     Dosage: UNK, BID (2X1)
     Route: 048
     Dates: start: 20180108, end: 20180114
  41. PARACETAMOL [Concomitant]
     Active Substance: ACETAMINOPHEN
     Dosage: 1 G, UNK
     Route: 048
     Dates: start: 20171127, end: 20171127
  42. RANITIDIN [Concomitant]
     Active Substance: RANITIDINE HYDROCHLORIDE
     Dosage: UNK
     Route: 042
     Dates: start: 20180108, end: 20180108
  43. MESNA. [Concomitant]
     Active Substance: MESNA
     Dosage: 2800 MG, UNK
     Route: 042
     Dates: start: 20180130, end: 20180130
  44. NEULASTA [Concomitant]
     Active Substance: PEGFILGRASTIM
     Dosage: 6 MG, UNK
     Route: 058
     Dates: start: 20180111, end: 20180111
  45. TAGAMET [Concomitant]
     Active Substance: CIMETIDINE
     Indication: PROPHYLAXIS
     Dosage: UNK
     Route: 048
     Dates: start: 20171127, end: 20171127
  46. RITUXIMAB (UNKNOWN) [Suspect]
     Active Substance: RITUXIMAB
     Indication: DIFFUSE LARGE B-CELL LYMPHOMA
     Dosage: 700 MG, UNK (INFUSION RATE 2.08 ML/MIN FROM 07:30 TO 11:30)
     Route: 042
     Dates: start: 20171109, end: 20171109
  47. CYCLOPHOSPHAMIDE. [Suspect]
     Active Substance: CYCLOPHOSPHAMIDE
     Indication: DIFFUSE LARGE B-CELL LYMPHOMA
     Dosage: 1400 MG, UNK (INFUSION RATE 2.1ML/MIN FROM 08:00 TO 12:00)
     Route: 041
     Dates: start: 20171113, end: 20171113
  48. CYCLOPHOSPHAMIDE. [Suspect]
     Active Substance: CYCLOPHOSPHAMIDE
     Dosage: 1400 MG, UNK (INFUSION RATE 2.08 ML/MIN FROM 07:35 TO 11:35)
     Route: 041
     Dates: start: 20171219, end: 20171219
  49. CYCLOPHOSPHAMIDE. [Suspect]
     Active Substance: CYCLOPHOSPHAMIDE
     Dosage: 400 MG, UNK (INFUSION RATE 2.08 ML/MIN FROM 07:35 TO 11:35)
     Route: 041
     Dates: start: 20180130, end: 20180130
  50. VINCRISTINE [Suspect]
     Active Substance: VINCRISTINE
     Dosage: 2 MG, UNK (INFUSION RATE 2 ML/MIN FROM 07:30 TO 07:35)
     Route: 041
     Dates: start: 20171219, end: 20171219
  51. PREDNISOLUT [PREDNISOLONE SODIUM SUCCINATE] [Concomitant]
     Indication: PROPHYLAXIS
     Dosage: 100 MG, UNK
     Route: 042
     Dates: start: 20171102, end: 20171102
  52. PREDNISOLUT [PREDNISOLONE SODIUM SUCCINATE] [Concomitant]
     Dosage: 100 MG, UNK
     Route: 042
     Dates: start: 20171109, end: 20171109
  53. PREDNISOLUT [PREDNISOLONE SODIUM SUCCINATE] [Concomitant]
     Dosage: 100 MG, UNK
     Route: 042
     Dates: start: 20171127, end: 20171127
  54. RANITIDIN [Concomitant]
     Active Substance: RANITIDINE HYDROCHLORIDE
     Indication: PROPHYLAXIS
     Dosage: UNK
     Route: 042
     Dates: start: 20171109, end: 20171109
  55. RANITIDIN [Concomitant]
     Active Substance: RANITIDINE HYDROCHLORIDE
     Dosage: UNK
     Route: 042
     Dates: start: 20180219, end: 20180219
  56. KEVATRIL [Concomitant]
     Active Substance: GRANISETRON HYDROCHLORIDE
     Dosage: 2 MG, UNK
     Route: 042
     Dates: start: 20180220, end: 20180220
  57. TAVEGIL [CLEMASTINE] [Concomitant]
     Active Substance: CLEMASTINE
     Indication: PROPHYLAXIS
     Dosage: UNK
     Route: 042
     Dates: start: 20171109, end: 20171109
  58. MESNA. [Concomitant]
     Active Substance: MESNA
     Dosage: 2800 UNK, UNK
     Route: 042
     Dates: start: 20171128, end: 20171128
  59. NEULASTA [Concomitant]
     Active Substance: PEGFILGRASTIM
     Dosage: 6 MG, UNK
     Route: 058
     Dates: start: 20171130, end: 20171130
  60. NEULASTA [Concomitant]
     Active Substance: PEGFILGRASTIM
     Dosage: 6 MG, UNK
     Route: 058
     Dates: start: 20171221, end: 20171221
  61. RITUXIMAB (UNKNOWN) [Suspect]
     Active Substance: RITUXIMAB
     Dosage: 700 MG, UNK (INFUSION RATE 2.08 ML/MIN FROM 07:30 TO 11:30)
     Route: 042
     Dates: start: 20171218, end: 20171218
  62. RITUXIMAB (UNKNOWN) [Suspect]
     Active Substance: RITUXIMAB
     Dosage: 700 MG, UNK (INFUSION RATE 2.08 ML/MIN FROM 07:30 TO 11:30)
     Route: 041
     Dates: start: 20180219
  63. CYCLOPHOSPHAMIDE. [Suspect]
     Active Substance: CYCLOPHOSPHAMIDE
     Dosage: 400 MG, UNK (INFUSION RATE 2.08 ML/MIN FROM 07:35 TO 11:35)
     Route: 041
     Dates: start: 20180220, end: 20180220
  64. DOXORUBICIN [Suspect]
     Active Substance: DOXORUBICIN
     Dosage: 92 MG, UNK (INFUSION RATE 8.33 ML/MIN FROM 11:35 TO 12:05)
     Route: 041
     Dates: start: 20180130, end: 20180130
  65. PREDNISOLUT [PREDNISOLONE SODIUM SUCCINATE] [Concomitant]
     Dosage: 100 MG, UNK
     Route: 042
     Dates: start: 20180129, end: 20180129
  66. AMPHO-MORONAL [Concomitant]
     Active Substance: AMPHOTERICIN B
     Dosage: UNK UNK, BID
     Route: 048
     Dates: start: 20171127, end: 20171203
  67. PARACETAMOL [Concomitant]
     Active Substance: ACETAMINOPHEN
     Indication: PROPHYLAXIS
     Dosage: 1 G, UNK
     Route: 048
     Dates: start: 20171109, end: 20171109
  68. PARACETAMOL [Concomitant]
     Active Substance: ACETAMINOPHEN
     Dosage: 1 G, UNK
     Route: 048
     Dates: start: 20180219, end: 20180219
  69. PANTOZOL [Concomitant]
     Active Substance: PANTOPRAZOLE SODIUM
     Indication: PROPHYLAXIS
     Dosage: 40 MG, UNK
     Route: 048
     Dates: start: 20171112
  70. KEVATRIL [Concomitant]
     Active Substance: GRANISETRON HYDROCHLORIDE
     Indication: PROPHYLAXIS
     Dosage: 1 MG, UNK
     Route: 042
     Dates: start: 20171102, end: 20171102
  71. KEVATRIL [Concomitant]
     Active Substance: GRANISETRON HYDROCHLORIDE
     Dosage: 2 MG, UNK
     Route: 042
     Dates: start: 20171129, end: 20171129
  72. KEVATRIL [Concomitant]
     Active Substance: GRANISETRON HYDROCHLORIDE
     Dosage: 2 MG, UNK
     Route: 042
     Dates: start: 20180109, end: 20180109
  73. KEVATRIL [Concomitant]
     Active Substance: GRANISETRON HYDROCHLORIDE
     Dosage: 2 MG, UNK
     Route: 042
     Dates: start: 20180130, end: 20180130
  74. TAVEGIL [CLEMASTINE] [Concomitant]
     Active Substance: CLEMASTINE
     Dosage: UNK
     Route: 042
     Dates: start: 20171127, end: 20171127
  75. TAVEGIL [CLEMASTINE] [Concomitant]
     Active Substance: CLEMASTINE
     Dosage: UNK
     Route: 042
     Dates: start: 20180129, end: 20180129
  76. NEULASTA [Concomitant]
     Active Substance: PEGFILGRASTIM
     Dosage: 6 MG, UNK
     Route: 058
     Dates: start: 20180222, end: 20180222
  77. RITUXIMAB (UNKNOWN) [Suspect]
     Active Substance: RITUXIMAB
     Dosage: 700 MG, UNK (INFUSION DATE 2.08 ML/MIN FROM 07:30 TO 11:30)
     Route: 042
     Dates: start: 20180108, end: 20180108
  78. CYCLOPHOSPHAMIDE. [Suspect]
     Active Substance: CYCLOPHOSPHAMIDE
     Dosage: 1400 MG, UNK (INFUSION RATE 2.08 ML/MIN FROM 07:35 TO 11:35)
     Route: 041
     Dates: start: 20171128, end: 20171128
  79. DOXORUBICIN [Suspect]
     Active Substance: DOXORUBICIN
     Dosage: 93 MG, UNK (INFUSION RATE 8.33 ML/MIN FROM 11:35 TO 12:05)
     Route: 041
     Dates: start: 20171219, end: 20171219
  80. AMPHO-MORONAL [Concomitant]
     Active Substance: AMPHOTERICIN B
     Dosage: UNK UNK, BID (2X1)
     Route: 048
     Dates: start: 20180219, end: 20180226
  81. RANITIDIN [Concomitant]
     Active Substance: RANITIDINE HYDROCHLORIDE
     Dosage: UNK
     Route: 042
     Dates: start: 20180129, end: 20180129
  82. KEVATRIL [Concomitant]
     Active Substance: GRANISETRON HYDROCHLORIDE
     Dosage: 2 MG, UNK
     Route: 042
     Dates: start: 20171128, end: 20171128
  83. KEVATRIL [Concomitant]
     Active Substance: GRANISETRON HYDROCHLORIDE
     Dosage: 2 MG, UNK
     Route: 042
     Dates: start: 20171219, end: 20171219
  84. MESNA. [Concomitant]
     Active Substance: MESNA
     Dosage: 2800 MG, UNK
     Route: 042
     Dates: start: 20180109, end: 20180109
  85. RITUXIMAB (UNKNOWN) [Suspect]
     Active Substance: RITUXIMAB
     Dosage: 700 MG, UNK (INFUSION RATE 2.08 ML/MIN FROM 07:30 TO 11:30)
     Route: 041
     Dates: start: 20180129, end: 20180129
  86. VINCRISTINE [Suspect]
     Active Substance: VINCRISTINE
     Dosage: 2 MG, UNK (INFUSION RATE 2 ML/MIN FROM 07:30 TO 07:35)
     Route: 041
     Dates: start: 20180130, end: 20180130
  87. PREDNISOLUT [PREDNISOLONE SODIUM SUCCINATE] [Concomitant]
     Dosage: 100 MG, UNK
     Route: 042
     Dates: start: 20180108, end: 20180108
  88. PREDNISOLUT [PREDNISOLONE SODIUM SUCCINATE] [Concomitant]
     Dosage: 100 MG, UNK
     Route: 042
     Dates: start: 20180219, end: 20180219
  89. PARACETAMOL [Concomitant]
     Active Substance: ACETAMINOPHEN
     Dosage: 1 G, UNK
     Route: 048
     Dates: start: 20180108, end: 20180108
  90. UROMITEXAN [Concomitant]
     Active Substance: MESNA
     Indication: PROPHYLAXIS
     Dosage: 400 MG, UNK
     Route: 048
     Dates: start: 20171113, end: 20171113
  91. UROMITEXAN [Concomitant]
     Active Substance: MESNA
     Dosage: 400 MG, UNK
     Route: 048
     Dates: start: 20180109, end: 20180109
  92. KEVATRIL [Concomitant]
     Active Substance: GRANISETRON HYDROCHLORIDE
     Dosage: 1 MG, UNK
     Route: 042
     Dates: start: 20171113, end: 20171113
  93. TAVEGIL [CLEMASTINE] [Concomitant]
     Active Substance: CLEMASTINE
     Dosage: UNK
     Route: 042
     Dates: start: 20180219, end: 20180219

REACTIONS (15)
  - Depressed mood [Unknown]
  - Hypoaesthesia oral [Unknown]
  - Hypoaesthesia [Unknown]
  - Thalamic infarction [Recovered/Resolved]
  - Fatigue [Unknown]
  - Intervertebral disc protrusion [Not Recovered/Not Resolved]
  - Decreased appetite [Unknown]
  - Red blood cell count decreased [Unknown]
  - Tension [Unknown]
  - Fibrin D dimer increased [Not Recovered/Not Resolved]
  - Overdose [Unknown]
  - Gait disturbance [Unknown]
  - Anxiety [Unknown]
  - Gynaecomastia [Not Recovered/Not Resolved]
  - Haemoglobin decreased [Unknown]

NARRATIVE: CASE EVENT DATE: 20171109
